FAERS Safety Report 10112246 (Version 1)
Quarter: 2014Q2

REPORT INFORMATION
  Report Type: Spontaneous
  Country: US (occurrence: US)
  Receive Date: 20140425
  Receipt Date: 20140425
  Transmission Date: 20141212
  Serious: Yes (Other)
  Sender: FDA-Public Use
  Company Number: US-ELI_LILLY_AND_COMPANY-US201404005468

PATIENT
  Sex: Female

DRUGS (8)
  1. HUMALOG LISPRO [Suspect]
     Indication: TYPE 2 DIABETES MELLITUS
     Dosage: 35 U, PRN
     Route: 065
     Dates: start: 2010
  2. LANTUS [Concomitant]
     Dosage: 65 U, QD
  3. GABAPENTIN [Concomitant]
     Dosage: 2 DF, TID
  4. METFORMIN [Concomitant]
     Dosage: 1000 MG, BID
  5. PRAVASTATIN [Concomitant]
     Dosage: 20 MG, QD
  6. ELAVIL [Concomitant]
  7. ERGOCALCIFEROL [Concomitant]
     Dosage: UNK, WEEKLY (1/W)
  8. HYDROCHLOROTHIAZIDE [Concomitant]
     Indication: HYPERTENSION
     Dosage: 1 DF, QD

REACTIONS (4)
  - Renal disorder [Unknown]
  - Cardiac disorder [Unknown]
  - Hyperthyroidism [Unknown]
  - Drug dose omission [Unknown]
